FAERS Safety Report 10225044 (Version 1)
Quarter: 2014Q2

REPORT INFORMATION
  Report Type: Spontaneous
  Country: US (occurrence: US)
  Receive Date: 20140609
  Receipt Date: 20140609
  Transmission Date: 20141212
  Serious: Yes (Hospitalization, Other)
  Sender: FDA-Public Use
  Company Number: US-ABBVIE-14P-163-1243262-00

PATIENT
  Age: 22 Year
  Sex: Male

DRUGS (1)
  1. VICODIN 5/500 [Suspect]
     Indication: PRODUCT USED FOR UNKNOWN INDICATION

REACTIONS (2)
  - Hepatic enzyme increased [Recovered/Resolved]
  - Overdose [Recovered/Resolved]
